FAERS Safety Report 25186756 (Version 1)
Quarter: 2025Q2

REPORT INFORMATION
  Report Type: Spontaneous
  Country: CZ (occurrence: CZ)
  Receive Date: 20250411
  Receipt Date: 20250411
  Transmission Date: 20250717
  Serious: Yes (Hospitalization, Other)
  Sender: MERCK SHARP & DOHME LLC
  Company Number: None

PATIENT
  Age: 72 Year
  Sex: Female
  Weight: 80 kg

DRUGS (9)
  1. KEYTRUDA [Suspect]
     Active Substance: PEMBROLIZUMAB
     Indication: Renal cancer
     Dosage: ONE DOSE EVERY 21 DAYS, 2 CYCLES ADMINISTERED
     Route: 042
     Dates: start: 20250114, end: 20250204
  2. VALZAP COMBI 160MG/12.5MG [Concomitant]
  3. DETRALEX 500 [Concomitant]
  4. EUTHYROX [Concomitant]
     Active Substance: LEVOTHYROXINE SODIUM
     Dosage: 1-0-0 BEFORE MEAL
  5. NITRENDIPINE 20MG [Concomitant]
     Dosage: 1-0-0
  6. MILURIT 200 [Concomitant]
  7. LENVATINIB [Suspect]
     Active Substance: LENVATINIB
     Indication: Renal cancer
     Dosage: TWO CAPSULES (10 MG) (2-0-0)
     Route: 048
     Dates: start: 20250114, end: 20250224
  8. ROSUMOP 20 [Concomitant]
  9. METFORMIN HYDROCHLORIDE [Concomitant]
     Active Substance: METFORMIN HYDROCHLORIDE
     Dosage: 0-0-1

REACTIONS (3)
  - Diarrhoea [Recovered/Resolved]
  - Genital ulceration [Recovered/Resolved]
  - Condition aggravated [Recovering/Resolving]

NARRATIVE: CASE EVENT DATE: 20250225
